FAERS Safety Report 5018003-5 (Version None)
Quarter: 2006Q2

REPORT INFORMATION
  Report Type: 
  Country: None (occurrence: None)
  Receive Date: 20060530
  Receipt Date: 20050415
  Transmission Date: 20061013
  Serious: Yes (Other)
  Sender: FDA-Public Use
  Company Number: 2005013957

PATIENT
  Sex: Female
  Weight: 75 kg

DRUGS (3)
  1. LYRICA [Suspect]
     Indication: TRIGEMINAL NEURALGIA
     Dosage: 600 MG (300 MG, 2 IN 1 D), ORAL
     Route: 048
     Dates: start: 20041101, end: 20050317
  2. AMITRIPTYLINE HYDROCHLORIDE [Concomitant]
  3. ALL OTHER THERAPEUTIC PRODUCTS (ALL OTHER THERAPEUTIC PRODUCTS) [Concomitant]

REACTIONS (4)
  - JOINT SWELLING [None]
  - RESTLESSNESS [None]
  - SWELLING FACE [None]
  - WEIGHT INCREASED [None]
